FAERS Safety Report 17649963 (Version 7)
Quarter: 2021Q2

REPORT INFORMATION
  Report Type: Report from Study
  Country: CR (occurrence: CR)
  Receive Date: 20200408
  Receipt Date: 20210421
  Transmission Date: 20210716
  Serious: Yes (Other)
  Sender: FDA-Public Use
  Company Number: NVSC2019CR015635

PATIENT
  Age: 44 Year
  Sex: Male

DRUGS (3)
  1. SCAPHO [Suspect]
     Active Substance: SECUKINUMAB
     Indication: PSORIATIC ARTHROPATHY
  2. SCAPHO [Suspect]
     Active Substance: SECUKINUMAB
     Indication: ANKYLOSING SPONDYLITIS
     Dosage: 150 MG, QMO
     Route: 058
     Dates: start: 20190923, end: 20210204
  3. METHOTREXATE. [Suspect]
     Active Substance: METHOTREXATE
     Indication: PRODUCT USED FOR UNKNOWN INDICATION
     Dosage: UNK, Q4W
     Route: 065

REACTIONS (16)
  - Product availability issue [Unknown]
  - Hyperthyroidism [Not Recovered/Not Resolved]
  - Diabetes mellitus [Not Recovered/Not Resolved]
  - Malaise [Recovering/Resolving]
  - Pustule [Not Recovered/Not Resolved]
  - Thyroid disorder [Recovering/Resolving]
  - Discomfort [Recovering/Resolving]
  - Tachycardia [Unknown]
  - Nervousness [Not Recovered/Not Resolved]
  - Feeling abnormal [Recovering/Resolving]
  - Skin infection [Unknown]
  - Product dose omission issue [Unknown]
  - Furuncle [Unknown]
  - Folliculitis [Not Recovered/Not Resolved]
  - Arthralgia [Unknown]
  - Drug ineffective [Recovering/Resolving]
